FAERS Safety Report 8990802 (Version 1)
Quarter: 2012Q4

REPORT INFORMATION
  Report Type: Spontaneous
  Country: US (occurrence: None)
  Receive Date: 20121226
  Receipt Date: 20121226
  Transmission Date: 20130627
  Serious: Yes (Other)
  Sender: FDA-Public Use
  Company Number: None

PATIENT
  Sex: Female

DRUGS (1)
  1. PROLIA 60 MG SQ EVERY 6 MONTHS AMGEN [Suspect]
     Indication: OSTEOPOROSIS
     Dosage: 60 mg every 6 months Sub Q
     Dates: start: 201207

REACTIONS (2)
  - Oesophageal spasm [None]
  - Gastrooesophageal reflux disease [None]
